FAERS Safety Report 4731080-1 (Version None)
Quarter: 2005Q3

REPORT INFORMATION
  Report Type: 
  Country: None (occurrence: None)
  Receive Date: 20050726
  Receipt Date: 20041207
  Transmission Date: 20060218
  Serious: Yes (Hospitalization)
  Sender: FDA-Public Use
  Company Number: 05BEL0017

PATIENT
  Sex: Male

DRUGS (7)
  1. AGGRASTAT [Suspect]
     Indication: ACUTE CORONARY SYNDROME
     Dosage: 0.4UG/KG/MIN, 30MIN; 0.1UG/KG/MIN THEREAFTER
     Dates: start: 20041115, end: 20041116
  2. ENOXAPARIN SODIUM [Suspect]
     Indication: ACUTE CORONARY SYNDROME
     Dosage: 70MG BID
     Dates: start: 20041115
  3. ASPIRIN [Concomitant]
  4. INSULIN [Concomitant]
  5. ISOSORBIDE DINITRATE [Concomitant]
  6. ZANTAC [Concomitant]
  7. ASPIRIN [Concomitant]

REACTIONS (1)
  - THROMBOCYTOPENIA [None]
